FAERS Safety Report 20208423 (Version 3)
Quarter: 2022Q1

REPORT INFORMATION
  Report Type: Spontaneous
  Country: CH (occurrence: CH)
  Receive Date: 20211220
  Receipt Date: 20220201
  Transmission Date: 20220424
  Serious: Yes (Other)
  Sender: FDA-Public Use
  Company Number: CH-GUERBET-CH-20210041

PATIENT
  Age: 35 Year
  Sex: Female
  Weight: 53 kg

DRUGS (2)
  1. DOTAREM [Suspect]
     Active Substance: GADOTERATE MEGLUMINE
     Indication: Magnetic resonance imaging
     Dosage: 0.1 ML / SEC
     Route: 042
     Dates: start: 20211209, end: 20211209
  2. METAMUCIL [Concomitant]
     Active Substance: PLANTAGO SEED
     Indication: Premedication
     Dosage: 2 X 5.8 G IN WATER
     Route: 065
     Dates: start: 20211209, end: 20211209

REACTIONS (4)
  - Circumoral swelling [Recovered/Resolved]
  - Lip swelling [Recovered/Resolved]
  - Urticaria [Recovered/Resolved]
  - Cough [Recovered/Resolved]

NARRATIVE: CASE EVENT DATE: 20211209
